FAERS Safety Report 21555671 (Version 1)
Quarter: 2022Q4

REPORT INFORMATION
  Report Type: Spontaneous
  Country: FR (occurrence: FR)
  Receive Date: 20221104
  Receipt Date: 20221104
  Transmission Date: 20230112
  Serious: Yes (Hospitalization)
  Sender: FDA-Public Use
  Company Number: None

PATIENT
  Age: 68 Year
  Sex: Male
  Weight: 68 kg

DRUGS (3)
  1. CLOPIDOGREL BISULFATE [Suspect]
     Active Substance: CLOPIDOGREL BISULFATE
     Indication: Myocardial ischaemia
     Dosage: CLOPIDOGREL (HYDROGENOSULFATE DE)  , UNIT DOSE : 75 M G  , FREQUENCY TIME : 1 DAY   , DURATION :  99
     Dates: start: 20200110, end: 20220927
  2. KARDEGIC [Suspect]
     Active Substance: ASPIRIN DL-LYSINE
     Indication: Myocardial ischaemia
     Dosage: POWDER FOR ORAL SOLUTION IN SACHET-DOSE  , FORM STRENGTH : 75 MG   , UNIT DOSE :  75 MG   , FREQUENC
     Dates: start: 20200110, end: 20220927
  3. XARELTO [Suspect]
     Active Substance: RIVAROXABAN
     Indication: Atrial fibrillation
     Dosage: FORM STRENGTH : 15 MG   , UNIT DOSE : 15 MG   , FREQUENCY TIME :  1 DAY  , DURATION :  363 DAYS
     Dates: start: 20210929, end: 20220927

REACTIONS (1)
  - Subdural haematoma [Recovering/Resolving]

NARRATIVE: CASE EVENT DATE: 20220929
